FAERS Safety Report 10386623 (Version 1)
Quarter: 2014Q1

REPORT INFORMATION
  Report Type: Spontaneous
  Country: US (occurrence: None)
  Receive Date: 20140306
  Receipt Date: 20140306
  Transmission Date: 20141002
  Serious: Yes (Hospitalization)
  Sender: FDA-Public Use
  Company Number: 163-21880-13120879

PATIENT
  Age: 45 Year
  Sex: Male

DRUGS (7)
  1. REVLIMID (LENALIDOMIDE) (CAPSULES) [Suspect]
     Indication: PLASMA CELL MYELOMA
     Route: 048
  2. DEXAMETHASONE (DEXAMETHASONE) 40 MILLIGRAM, CAPSULES) [Suspect]
     Indication: PLASMA CELL MYELOMA
     Dosage: 40 MG, 4 IN22 D, PO UNKNOWN- ONGOING THERAPY DATES
     Route: 048
  3. SAR650984 ( INJECTION FOR INFUSION) [Suspect]
     Indication: PLASMA CELL MYELOMA
     Dosage: NOT PROVIDED , 1 IN 2 WK, IV 11/21/2013 - 11/21/2013
     Dates: start: 20131121, end: 20131121
  4. OXYCODONE [Concomitant]
  5. NORMAL SALINE (SODIUM CHLORIDE ) [Concomitant]
  6. CEFEPIME [Concomitant]
  7. RED BLOOD CELLS [Concomitant]

REACTIONS (1)
  - Hypotension [None]
